FAERS Safety Report 6150771 (Version 6)
Quarter: 2014Q1

REPORT INFORMATION
  Report Type: Spontaneous
  Country: GB (occurrence: GB)
  Receive Date: 20061020
  Receipt Date: 20140328
  Transmission Date: 20141002
  Serious: Yes (Life-Threatening, Hospitalization, Other)
  Sender: FDA-Public Use
  Company Number: GB-BRISTOL-MYERS SQUIBB COMPANY-13540281

PATIENT
  Age: 32 Year
  Sex: Male
  Weight: 82 kg

DRUGS (9)
  1. REYATAZ [Suspect]
     Indication: HIV INFECTION
     Route: 048
     Dates: start: 20050801, end: 20060610
  2. VIDEX [Suspect]
     Indication: HIV INFECTION
     Route: 048
     Dates: start: 20050801, end: 20060610
  3. RITONAVIR [Suspect]
     Indication: HIV INFECTION
     Route: 048
     Dates: start: 20050801, end: 20060609
  4. VIREAD [Suspect]
     Indication: HIV INFECTION
     Dosage: ^REDUCED DOSE^
     Route: 048
     Dates: start: 20050801, end: 20060609
  5. BACTRIM [Concomitant]
     Route: 048
     Dates: start: 20050301
  6. ZIDOVUDINE [Concomitant]
  7. CREATINE MONOHYDRATE [Concomitant]
  8. HERBAL MIXTURE [Concomitant]
  9. SEPTRIN [Concomitant]
     Indication: PNEUMOCYSTIS JIROVECII PNEUMONIA
     Route: 048
     Dates: start: 200503

REACTIONS (10)
  - Myositis [Recovered/Resolved]
  - Alanine aminotransferase increased [Recovered/Resolved]
  - Aspartate aminotransferase increased [Recovered/Resolved]
  - Blood antidiuretic hormone increased [Recovered/Resolved]
  - Blood creatine phosphokinase increased [Recovered/Resolved]
  - Mobility decreased [Recovering/Resolving]
  - Myoglobin blood increased [Recovered/Resolved]
  - Myalgia [Recovered/Resolved]
  - Pain in extremity [Recovered/Resolved]
  - Muscle injury [Recovered/Resolved]
